FAERS Safety Report 4469199-5 (Version None)
Quarter: 2004Q4

REPORT INFORMATION
  Report Type: 
  Country: None (occurrence: None)
  Receive Date: 20041005
  Receipt Date: 20040921
  Transmission Date: 20050328
  Serious: No
  Sender: FDA-Public Use
  Company Number: 2004CG01895

PATIENT
  Age: 60 Year
  Sex: Female
  Weight: 70 kg

DRUGS (1)
  1. CARBOCAINE [Suspect]
     Indication: ANAESTHESIA
     Dosage: 800 MG ONCE PNEU
     Dates: start: 20020101, end: 20020101

REACTIONS (5)
  - ANAESTHETIC COMPLICATION [None]
  - EYEBALL AVULSION [None]
  - OVERDOSE [None]
  - SINUS BRADYCARDIA [None]
  - URINARY INCONTINENCE [None]
